FAERS Safety Report 4837296-8 (Version None)
Quarter: 2005Q4

REPORT INFORMATION
  Report Type: 
  Country: None (occurrence: None)
  Receive Date: 20051122
  Receipt Date: 20051108
  Transmission Date: 20060501
  Serious: Yes (Other)
  Sender: FDA-Public Use
  Company Number: S05-SWI-04164-01

PATIENT
  Age: 36 Year
  Sex: Female

DRUGS (6)
  1. CITALOPRAM HYDROBROMIDE [Suspect]
     Indication: DEPRESSION
     Dosage: 20 MG QD PO
     Route: 048
     Dates: end: 20050124
  2. NORTRILEN ^PROMONTA LUNDBECK^ (NOTRIPTYLINE HYDROCHLORIDE) [Suspect]
     Indication: MIGRAINE
     Dosage: 10 MG QD PO
     Route: 048
     Dates: start: 20041201, end: 20050124
  3. DEPAKENE [Suspect]
     Indication: MIGRAINE
     Dates: end: 20050124
  4. ISOPTIN [Suspect]
     Indication: MIGRAINE
     Dosage: 80 MG BID PO
     Route: 048
     Dates: start: 20041225, end: 20050124
  5. ISOPTIN [Suspect]
     Indication: MIGRAINE
     Dosage: 80 MG QD PO
     Route: 048
     Dates: start: 20041210, end: 20041224
  6. BRONCHO-VAXOM [Suspect]
     Dosage: 1 CAPSULE QD PO
     Route: 048
     Dates: end: 20050124

REACTIONS (4)
  - CAESAREAN SECTION [None]
  - DRUG EXPOSURE DURING PREGNANCY [None]
  - FEAR [None]
  - PREGNANCY [None]
